FAERS Safety Report 17226098 (Version 2)
Quarter: 2020Q1

REPORT INFORMATION
  Report Type: Spontaneous
  Country: CN (occurrence: CN)
  Receive Date: 20200102
  Receipt Date: 20200120
  Transmission Date: 20200409
  Serious: Yes (Other)
  Sender: FDA-Public Use
  Company Number: CN-BAYER-2019-236075

PATIENT
  Age: 49 Year
  Sex: Male
  Weight: 69 kg

DRUGS (3)
  1. GLUCOBAY [Suspect]
     Active Substance: ACARBOSE
     Indication: BLOOD GLUCOSE ABNORMAL
     Dosage: 100 MG, TID
     Route: 048
     Dates: end: 20191112
  2. GLUCOBAY [Suspect]
     Active Substance: ACARBOSE
     Indication: BLOOD GLUCOSE ABNORMAL
     Dosage: 150 MG, TID
     Route: 048
     Dates: start: 20191113, end: 20191120
  3. GLIMEPIRIDE. [Concomitant]
     Active Substance: GLIMEPIRIDE

REACTIONS (2)
  - Drug-induced liver injury [Recovering/Resolving]
  - Hepatic function abnormal [Recovering/Resolving]

NARRATIVE: CASE EVENT DATE: 20191119
